FAERS Safety Report 6905894-3 (Version None)
Quarter: 2010Q3

REPORT INFORMATION
  Report Type: 
  Country: None (occurrence: None)
  Receive Date: 20100804
  Receipt Date: 20100730
  Transmission Date: 20110219
  Serious: Yes (Hospitalization)
  Sender: FDA-Public Use
  Company Number: FR-ROCHE-717366

PATIENT
  Sex: Female
  Weight: 64 kg

DRUGS (20)
  1. MYCOPHENOLATE MOFETIL [Suspect]
     Route: 048
     Dates: start: 20100701, end: 20100726
  2. MYCOPHENOLATE MOFETIL [Suspect]
     Dosage: DAILY DOSE: 1.5 GRAM OR 2 GRAM
     Route: 048
  3. SOLUPRED [Suspect]
     Route: 048
     Dates: start: 20100701
  4. SOLUPRED [Suspect]
     Dosage: DECREASED DOSE ACCORDING TO PROTOCOL
     Route: 048
     Dates: start: 20100703
  5. CERTICAN [Suspect]
     Route: 048
     Dates: start: 20100706, end: 20100711
  6. CERTICAN [Suspect]
     Dosage: THERAPY PERMANENTLY DISCONTINUED
     Route: 048
     Dates: start: 20100712, end: 20100728
  7. BACTRIM [Concomitant]
  8. KALEORID [Concomitant]
  9. FORLAX [Concomitant]
  10. LASIX [Concomitant]
  11. ACUPAN [Concomitant]
  12. NEXIUM [Concomitant]
  13. INSULINE [Concomitant]
  14. SPASFON [Concomitant]
  15. PERFALGAN [Concomitant]
  16. DEROXAT [Concomitant]
  17. IMOVANE [Concomitant]
  18. CALCIPARINE [Concomitant]
  19. NOVONORM [Concomitant]
  20. SPECIAFOLDINE [Concomitant]

REACTIONS (2)
  - BLOOD CREATININE INCREASED [None]
  - TRANSPLANT REJECTION [None]
